FAERS Safety Report 23342893 (Version 1)
Quarter: 2023Q4

REPORT INFORMATION
  Report Type: Spontaneous
  Country: US (occurrence: US)
  Receive Date: 20231227
  Receipt Date: 20231227
  Transmission Date: 20240110
  Serious: Yes (Hospitalization)
  Sender: FDA-Public Use
  Company Number: US-BRISTOL-MYERS SQUIBB COMPANY-2023-184395

PATIENT
  Age: 82 Year
  Sex: Female

DRUGS (1)
  1. POMALYST [Suspect]
     Active Substance: POMALIDOMIDE
     Indication: Plasma cell myeloma
     Dosage: 5 DAYS A WEEK MONDAY-FRIDAY FOR 3 WEEKS THEN 1 WEEK OF
     Route: 044
     Dates: start: 2021

REACTIONS (2)
  - COVID-19 [Unknown]
  - Off label use [Unknown]
